FAERS Safety Report 4631106-X (Version None)
Quarter: 2005Q2

REPORT INFORMATION
  Report Type: 
  Country: None (occurrence: None)
  Receive Date: 20050406
  Receipt Date: 20050406
  Transmission Date: 20051028
  Serious: Yes (Other)
  Sender: FDA-Public Use
  Company Number: None

PATIENT
  Sex: Female
  Weight: 53.978 kg

DRUGS (1)
  1. INVANZ [Suspect]
     Dosage: 500 MG IV Q24H
     Route: 042
     Dates: start: 20050105, end: 20050110

REACTIONS (4)
  - AGITATION [None]
  - CONFUSIONAL STATE [None]
  - HYPOGLYCAEMIA [None]
  - MENTAL STATUS CHANGES [None]
